FAERS Safety Report 5045193-0 (Version None)
Quarter: 2006Q3

REPORT INFORMATION
  Report Type: 
  Country: None (occurrence: None)
  Receive Date: 20060707
  Receipt Date: 20060703
  Transmission Date: 20061208
  Serious: Yes (Other)
  Sender: FDA-Public Use
  Company Number: US-GLAXOSMITHKLINE-A0611001A

PATIENT
  Age: 79 Year
  Sex: Female

DRUGS (2)
  1. COREG [Suspect]
     Route: 048
     Dates: start: 20060201
  2. COUMADIN [Concomitant]

REACTIONS (4)
  - BLINDNESS [None]
  - CEREBROVASCULAR ACCIDENT [None]
  - EYE PAIN [None]
  - VISION BLURRED [None]
